FAERS Safety Report 20587056 (Version 1)
Quarter: 2022Q1

REPORT INFORMATION
  Report Type: Spontaneous
  Country: US (occurrence: US)
  Receive Date: 20220314
  Receipt Date: 20220314
  Transmission Date: 20220423
  Serious: Yes (Other)
  Sender: FDA-Public Use
  Company Number: US-NOVOPROD-897803

PATIENT
  Sex: Male

DRUGS (2)
  1. NOVOLIN R [Suspect]
     Active Substance: INSULIN HUMAN
     Indication: Product used for unknown indication
     Dosage: 10 UNITS PER SHOT BID, THEN
     Route: 058
     Dates: start: 20220212
  2. NOVOLIN R [Suspect]
     Active Substance: INSULIN HUMAN
     Dosage: INCREASED TO 40 UNITS PER SHOT
     Route: 058

REACTIONS (2)
  - Back disorder [Not Recovered/Not Resolved]
  - Blood glucose abnormal [Unknown]
